FAERS Safety Report 16198399 (Version 3)
Quarter: 2019Q2

REPORT INFORMATION
  Report Type: Spontaneous
  Country: JP (occurrence: JP)
  Receive Date: 20190415
  Receipt Date: 20190625
  Transmission Date: 20190711
  Serious: Yes (Death, Life-Threatening, Hospitalization, Other)
  Sender: FDA-Public Use
  Company Number: JP-BRISTOL-MYERS SQUIBB COMPANY-BMS-2019-036522

PATIENT
  Age: 46 Year
  Sex: Male
  Weight: 69.3 kg

DRUGS (4)
  1. OPDIVO [Suspect]
     Active Substance: NIVOLUMAB
     Indication: PRODUCT USED FOR UNKNOWN INDICATION
     Dosage: 173 MG
     Route: 041
     Dates: start: 20171017, end: 20171031
  2. OPDIVO [Suspect]
     Active Substance: NIVOLUMAB
     Indication: HEAD AND NECK CANCER
     Dosage: 200 MG
     Route: 041
     Dates: start: 20170821, end: 20170904
  3. OPDIVO [Suspect]
     Active Substance: NIVOLUMAB
     Indication: PRODUCT USED FOR UNKNOWN INDICATION
     Dosage: 176 MG
     Route: 041
     Dates: start: 20171003, end: 20171003
  4. OPDIVO [Suspect]
     Active Substance: NIVOLUMAB
     Indication: PRODUCT USED FOR UNKNOWN INDICATION
     Dosage: 198 MG
     Route: 041
     Dates: start: 20170919, end: 20170919

REACTIONS (7)
  - Malignant neoplasm progression [Fatal]
  - Hypoaesthesia [Not Recovered/Not Resolved]
  - Nausea [Recovered/Resolved]
  - Pleural effusion [Not Recovered/Not Resolved]
  - Infectious pleural effusion [Recovered/Resolved]
  - Weight decreased [Not Recovered/Not Resolved]
  - Urinary retention [Recovered/Resolved]

NARRATIVE: CASE EVENT DATE: 20170822
